FAERS Safety Report 5787814-0 (Version None)
Quarter: 2008Q2

REPORT INFORMATION
  Report Type: 
  Country: None (occurrence: None)
  Receive Date: 20080625
  Receipt Date: 20080625
  Transmission Date: 20081010
  Serious: Yes (Other)
  Sender: FDA-Public Use
  Company Number: PHHO2000MX10133

PATIENT
  Sex: Female
  Weight: 98 kg

DRUGS (2)
  1. CO-DIOVAN T32564+CAPS [Suspect]
     Indication: ESSENTIAL HYPERTENSION
     Dosage: 160MG/25MG
     Dates: start: 20001009
  2. PRAVASTATIN [Concomitant]
     Indication: HYPERLIPIDAEMIA

REACTIONS (2)
  - INSOMNIA [None]
  - SINUS ARRHYTHMIA [None]
